FAERS Safety Report 21481158 (Version 1)
Quarter: 2022Q4

REPORT INFORMATION
  Report Type: Spontaneous
  Country: US (occurrence: None)
  Receive Date: 20221019
  Receipt Date: 20221019
  Transmission Date: 20230112
  Serious: Yes (Hospitalization)
  Sender: FDA-Public Use
  Company Number: None

PATIENT
  Age: 62 Year
  Sex: Male
  Weight: 75.4 kg

DRUGS (2)
  1. CASODEX [Suspect]
     Active Substance: BICALUTAMIDE
     Dates: end: 20220930
  2. TAXOTERE [Suspect]
     Active Substance: DOCETAXEL
     Dates: end: 20220930

REACTIONS (4)
  - Renal colic [None]
  - Hydroureter [None]
  - Nephrotic syndrome [None]
  - Nephrolithiasis [None]

NARRATIVE: CASE EVENT DATE: 20221005
